FAERS Safety Report 8776948 (Version 2)
Quarter: 2012Q4

REPORT INFORMATION
  Report Type: 
  Country: US (occurrence: US)
  Receive Date: 20120911
  Receipt Date: 20121019
  Transmission Date: 20130627
  Serious: Yes (Hospitalization, Other)
  Sender: FDA-Public Use
  Company Number: US-GLAXOSMITHKLINE-A0991174A

PATIENT
  Age: 28 Year
  Sex: Female

DRUGS (2)
  1. FLOLAN [Suspect]
     Indication: PRODUCT USED FOR UNKNOWN INDICATION
     Dosage: 4.25NGKM Continuous
     Route: 042
     Dates: start: 20120718
  2. BOSENTAN [Concomitant]

REACTIONS (5)
  - Dyspnoea [Recovered/Resolved]
  - Palpitations [Recovered/Resolved]
  - Tachycardia [Recovered/Resolved]
  - Drug intolerance [Recovered/Resolved]
  - Fatigue [Recovered/Resolved]
